FAERS Safety Report 9401392 (Version 1)
Quarter: 2013Q3

REPORT INFORMATION
  Report Type: Spontaneous
  Country: CN (occurrence: CN)
  Receive Date: 20130715
  Receipt Date: 20130715
  Transmission Date: 20140515
  Serious: Yes (Other)
  Sender: FDA-Public Use
  Company Number: CN-BAXTER-2013BAX026731

PATIENT
  Sex: Male
  Weight: 20 kg

DRUGS (2)
  1. 0.9% SODIUM CHLORIDE INJECTION [Suspect]
     Indication: ADJUVANT THERAPY
     Route: 041
     Dates: start: 20120617, end: 20120617
  2. CEFUROXIME SODIUM [Suspect]
     Indication: ADJUVANT THERAPY
     Route: 041
     Dates: start: 20120617, end: 20120617

REACTIONS (2)
  - Rash [Recovering/Resolving]
  - Pruritus [Recovering/Resolving]
